FAERS Safety Report 6527139-9 (Version None)
Quarter: 2010Q1

REPORT INFORMATION
  Report Type: 
  Country: None (occurrence: None)
  Receive Date: 20100105
  Receipt Date: 20091230
  Transmission Date: 20100710
  Serious: Yes (Hospitalization, Other)
  Sender: FDA-Public Use
  Company Number: US-ELI_LILLY_AND_COMPANY-US200912005990

PATIENT
  Sex: Male

DRUGS (2)
  1. HUMATROPE [Suspect]
     Indication: BLOOD GROWTH HORMONE
     Dosage: 0.2 MG, DAILY (1/D)
     Dates: start: 20000101
  2. THYROID THERAPY [Concomitant]
     Dosage: UNK, UNKNOWN

REACTIONS (4)
  - GENERAL PHYSICAL HEALTH DETERIORATION [None]
  - PROSTATOMEGALY [None]
  - THROMBOSIS [None]
  - THYROID DISORDER [None]
